FAERS Safety Report 9295610 (Version 1)
Quarter: 2013Q2

REPORT INFORMATION
  Report Type: Spontaneous
  Country: US (occurrence: None)
  Receive Date: 20130514
  Receipt Date: 20130514
  Transmission Date: 20140414
  Serious: Yes (Life-Threatening)
  Sender: FDA-Public Use
  Company Number: FK201301430

PATIENT
  Age: 64 Year
  Sex: Male

DRUGS (1)
  1. PROPOFOL [Suspect]
     Indication: INDUCTION OF ANAESTHESIA
     Dosage: 180 MG, 1 IN 1 D, INTRAVENOUS (NOT OTHERWISE SPECIFIED)
     Route: 042

REACTIONS (5)
  - Atrioventricular block complete [None]
  - Cardiogenic shock [None]
  - Sinus tachycardia [None]
  - Pulmonary oedema [None]
  - Continuous haemodiafiltration [None]
